FAERS Safety Report 8012764-9 (Version None)
Quarter: 2011Q4

REPORT INFORMATION
  Report Type: 
  Country: None (occurrence: None)
  Receive Date: 20111229
  Receipt Date: 20111219
  Transmission Date: 20120403
  Serious: Yes (Hospitalization, Other)
  Sender: FDA-Public Use
  Company Number: US-BAYER-2011-123047

PATIENT
  Age: 24 Year
  Weight: 63.492 kg

DRUGS (1)
  1. DROSPIRENONE AND ETHINYL ESTRADIOL [Suspect]
     Indication: CONTRACEPTION
     Dosage: UNK
     Dates: start: 20080901, end: 20090701

REACTIONS (6)
  - DEPRESSION [None]
  - CHOLECYSTITIS CHRONIC [None]
  - KELOID SCAR [None]
  - DIARRHOEA [None]
  - GASTROINTESTINAL DISORDER [None]
  - PAINFUL RESPIRATION [None]
